FAERS Safety Report 5017908-9 (Version None)
Quarter: 2006Q2

REPORT INFORMATION
  Report Type: 
  Country: None (occurrence: None)
  Receive Date: 20060605
  Receipt Date: 20060529
  Transmission Date: 20061013
  Serious: Yes (Life-Threatening)
  Sender: FDA-Public Use
  Company Number: 2006AP02393

PATIENT
  Age: 31696 Day
  Sex: Female
  Weight: 55 kg

DRUGS (4)
  1. PULMICORT [Suspect]
     Indication: EMPHYSEMA
     Route: 055
     Dates: end: 20060202
  2. TEGRETOL [Suspect]
     Indication: HERPES ZOSTER
     Route: 048
     Dates: start: 20060110, end: 20060131
  3. TOFRANIL [Suspect]
     Indication: HERPES ZOSTER
     Dates: start: 20060110, end: 20060131
  4. DI-GESIC [Suspect]
     Indication: HERPES ZOSTER
     Route: 048
     Dates: start: 20060110, end: 20060131

REACTIONS (2)
  - HYPONATRAEMIA [None]
  - INAPPROPRIATE ANTIDIURETIC HORMONE SECRETION [None]
